FAERS Safety Report 10146419 (Version 1)
Quarter: 2014Q2

REPORT INFORMATION
  Report Type: Spontaneous
  Country: US (occurrence: None)
  Receive Date: 20140430
  Receipt Date: 20140430
  Transmission Date: 20141212
  Serious: Yes (Life-Threatening)
  Sender: FDA-Public Use
  Company Number: None

PATIENT
  Age: 36 Year
  Sex: Female
  Weight: 83.92 kg

DRUGS (1)
  1. FENTANYL [Suspect]
     Indication: PAIN
     Dosage: APPROXIMATELY 8 MONTHS, ONE 50MCG PATCH, EVERY 72 HOURS, APPLIED AS MEDICATED PATCH TO SKIN

REACTIONS (2)
  - Product adhesion issue [None]
  - Product quality issue [None]
